FAERS Safety Report 7521450-0 (Version None)
Quarter: 2011Q2

REPORT INFORMATION
  Report Type: 
  Country: None (occurrence: None)
  Receive Date: 20110603
  Receipt Date: 20110207
  Transmission Date: 20111010
  Serious: Yes (Death, Other)
  Sender: FDA-Public Use
  Company Number: JP-BAYER-2010-004510

PATIENT
  Age: 59 Year
  Sex: Female
  Weight: 49 kg

DRUGS (18)
  1. SORAFENIB (RAF KINASE INHIBITOR) [Suspect]
     Indication: HEPATIC NEOPLASM MALIGNANT
     Dosage: 400 MG, QD
     Route: 048
     Dates: start: 20090526, end: 20091001
  2. BARACLUDE [Concomitant]
     Dosage: 0.5 MG, QD
     Route: 048
     Dates: start: 20091126, end: 20100223
  3. ALDACTONE [Concomitant]
     Dosage: 25 MG, QD
     Route: 048
     Dates: start: 20091201, end: 20100223
  4. LIVACT [Concomitant]
     Dosage: 12 MG, QD
     Route: 048
     Dates: start: 20091126, end: 20100120
  5. FAMOTIDINE [Concomitant]
     Dosage: 40 MG, QD
     Route: 048
     Dates: start: 20091126, end: 20100217
  6. SORAFENIB (RAF KINASE INHIBITOR) [Suspect]
     Dosage: 400 MG, QD
     Route: 048
     Dates: start: 20100105, end: 20100127
  7. TEGRETOL [Concomitant]
     Dosage: 200 MG, QD
     Route: 048
     Dates: start: 20100202, end: 20100222
  8. RABEPRAZOLE SODIUM [Concomitant]
     Indication: PROPHYLAXIS
     Dosage: 20 MG, QD
     Route: 048
  9. BARACLUDE [Concomitant]
     Dosage: 0.5 MG, QD
     Route: 048
     Dates: start: 20091126, end: 20100223
  10. LOXONIN [Concomitant]
     Dosage: 60 MG, QD
     Route: 048
     Dates: start: 20090901
  11. LASIX [Concomitant]
     Dosage: 40 MG, QD
     Route: 048
     Dates: start: 20091201, end: 20100323
  12. AMINOLEBAN EN [Concomitant]
     Dosage: 50 G, QD
     Route: 048
     Dates: start: 20100121, end: 20100324
  13. PREPENON DAINIPPON [Concomitant]
     Dosage: DAILY DOSE 100 MG
     Route: 042
     Dates: start: 20100323, end: 20100326
  14. DRUGS FOR PEPTIC ULCER AND GORD [Concomitant]
     Dosage: 1.2 G, QD
     Route: 048
     Dates: start: 20091126, end: 20100217
  15. SORAFENIB (RAF KINASE INHIBITOR) [Suspect]
     Dosage: 200 MG, QD
     Route: 048
     Dates: start: 20100202, end: 20100215
  16. BARACLUDE [Concomitant]
     Dosage: 0.5 MG, QD
     Route: 048
     Dates: start: 20091126, end: 20100223
  17. OXYCONTIN [Concomitant]
     Dosage: 10 MG, QD
     Route: 048
     Dates: start: 20100225, end: 20100322
  18. OXINORM [Concomitant]
     Dosage: 5 MG, QD
     Route: 048
     Dates: start: 20100222, end: 20100322

REACTIONS (5)
  - PULMONARY ALVEOLAR HAEMORRHAGE [None]
  - ENTEROCOLITIS [None]
  - PALMAR-PLANTAR ERYTHRODYSAESTHESIA SYNDROME [None]
  - HAEMOPTYSIS [None]
  - HEPATIC NEOPLASM MALIGNANT [None]
